FAERS Safety Report 7656498-9 (Version None)
Quarter: 2011Q3

REPORT INFORMATION
  Report Type: 
  Country: None (occurrence: None)
  Receive Date: 20110804
  Receipt Date: 20100818
  Transmission Date: 20111222
  Serious: No
  Sender: FDA-Public Use
  Company Number: US-BAUSCH-2010BL004595

PATIENT
  Age: 53 Year
  Sex: Female

DRUGS (3)
  1. OPCON-A [Suspect]
     Indication: OCULAR HYPERAEMIA
     Route: 047
     Dates: start: 20100816, end: 20100816
  2. OPCON-A [Suspect]
     Indication: ASTHENOPIA
     Route: 047
     Dates: start: 20100816, end: 20100816
  3. OPCON-A [Suspect]
     Indication: EYE PRURITUS
     Route: 047
     Dates: start: 20100816, end: 20100816

REACTIONS (3)
  - ABNORMAL SENSATION IN EYE [None]
  - VISUAL IMPAIRMENT [None]
  - MYDRIASIS [None]
